FAERS Safety Report 5075615-0 (Version None)
Quarter: 2006Q3

REPORT INFORMATION
  Report Type: 
  Country: None (occurrence: None)
  Receive Date: 20060809
  Receipt Date: 20060731
  Transmission Date: 20061208
  Serious: Yes (Other)
  Sender: FDA-Public Use
  Company Number: 2006UW15448

PATIENT
  Age: 33 Year
  Sex: Female
  Weight: 55 kg

DRUGS (2)
  1. SEROQUEL [Suspect]
     Indication: BIPOLAR DISORDER
     Route: 048
     Dates: start: 20030101
  2. VENLAFAXINE HCL [Concomitant]
     Indication: BIPOLAR DISORDER
     Route: 048
     Dates: start: 20030101

REACTIONS (2)
  - HEPATITIS [None]
  - HEPATOCELLULAR DAMAGE [None]
